FAERS Safety Report 6964635-4 (Version None)
Quarter: 2010Q3

REPORT INFORMATION
  Report Type: 
  Country: None (occurrence: None)
  Receive Date: 20100903
  Receipt Date: 20100826
  Transmission Date: 20110219
  Serious: Yes (Hospitalization)
  Sender: FDA-Public Use
  Company Number: US-ASTRAZENECA-2007UW25117

PATIENT
  Age: 54 Year
  Sex: Female

DRUGS (70)
  1. SEROQUEL [Suspect]
     Indication: DEPRESSION
     Dosage: 25 MG, 50  MG, 100 MG, 200 MG AT BEDTIME
     Route: 048
     Dates: start: 20040123, end: 20060101
  2. SEROQUEL [Suspect]
     Indication: SLEEP DISORDER
     Dosage: 25 MG, 50  MG, 100 MG, 200 MG AT BEDTIME
     Route: 048
     Dates: start: 20040123, end: 20060101
  3. LEXAPRO [Concomitant]
     Dosage: 5 MG FOR A WEEK THEN 10 MG
     Dates: start: 20030101
  4. LEXAPRO [Concomitant]
     Dates: start: 20040123
  5. INTERFERON [Concomitant]
  6. REMERON [Concomitant]
     Dates: start: 20040123
  7. HYDROCODONE [Concomitant]
  8. OXYCODONE [Concomitant]
  9. METHADONE HCL [Concomitant]
  10. ACTIGALL [Concomitant]
  11. DETROL [Concomitant]
  12. NORVASC [Concomitant]
  13. GLIMEPIRIDE [Concomitant]
  14. TRAZODONE HCL [Concomitant]
  15. HYDROXYZINE [Concomitant]
  16. ENALAPRIL [Concomitant]
  17. LASIX [Concomitant]
  18. CARBAMAZEPINE [Concomitant]
  19. ADVAIR DISKUS 100/50 [Concomitant]
  20. SKELAXIN [Concomitant]
  21. LORATADINE [Concomitant]
  22. POTASSIUM CHLORIDE [Concomitant]
  23. PREDNISONE [Concomitant]
  24. HYDROCHLOROTHIAZIDE [Concomitant]
  25. PROMETHAZINE [Concomitant]
  26. DOXEPIN HCL [Concomitant]
  27. SULFATRIM [Concomitant]
  28. DIFLUCAN [Concomitant]
  29. IBUPROFEN [Concomitant]
  30. LAMISIL [Concomitant]
  31. COMBIVENT [Concomitant]
  32. ARTIFICIAL TEARS [Concomitant]
  33. FLONASE [Concomitant]
  34. TRIAMCINOLONE [Concomitant]
  35. AMBIEN [Concomitant]
  36. DILANTIN [Concomitant]
  37. APAP W/ CODEINE [Concomitant]
  38. CEPHALEXIN [Concomitant]
  39. CYCLOBENZAPRINE [Concomitant]
  40. BENZONATATE [Concomitant]
  41. AUGMENTIN '125' [Concomitant]
  42. BIAXIN [Concomitant]
  43. RANITIDINE [Concomitant]
  44. OMNICEF [Concomitant]
  45. FERROUS SULFATE [Concomitant]
  46. TIZANIDINE HCL [Concomitant]
  47. CLEMASTINE FUMARATE [Concomitant]
  48. CLOTRIMAZOLE [Concomitant]
  49. ORPHENADRINE CITRATE [Concomitant]
  50. KETEK [Concomitant]
  51. ALLERX-D [Concomitant]
  52. CARISOPRODOL [Concomitant]
  53. CEFUROXIME [Concomitant]
  54. CHANTEX LA [Concomitant]
  55. TUSSIN DM [Concomitant]
  56. SINGULAIR [Concomitant]
  57. DOXYCYCLINE [Concomitant]
  58. METHYLDOPA [Concomitant]
  59. ACTOS [Concomitant]
  60. CITALOPRAM HYDROBROMIDE [Concomitant]
  61. GUAIFENESIN [Concomitant]
  62. ARTHROTEC [Concomitant]
  63. DICYCLOMINE [Concomitant]
  64. LYRICA [Concomitant]
  65. ASPIRIN [Concomitant]
  66. HUMULIN R [Concomitant]
  67. CLINDAMYCIN [Concomitant]
  68. DAILY VITAMIN + IRON [Concomitant]
  69. TRIPLE ANTIBIOTICS [Concomitant]
  70. TETRACYCLINE [Concomitant]

REACTIONS (7)
  - BLOOD PRESSURE INCREASED [None]
  - CARDIAC FAILURE CONGESTIVE [None]
  - DIABETIC RETINOPATHY [None]
  - OEDEMA PERIPHERAL [None]
  - PULMONARY HYPERTENSION [None]
  - RETINAL DETACHMENT [None]
  - TYPE 2 DIABETES MELLITUS [None]
